FAERS Safety Report 8123622-3 (Version None)
Quarter: 2012Q1

REPORT INFORMATION
  Report Type: 
  Country: None (occurrence: None)
  Receive Date: 20120208
  Receipt Date: 20120203
  Transmission Date: 20120608
  Serious: Yes (Other)
  Sender: FDA-Public Use
  Company Number: PHHY2012CA001869

PATIENT
  Sex: Female

DRUGS (1)
  1. ZOLEDRONOC ACID [Suspect]
     Dosage: UNK
     Route: 042
     Dates: start: 20101201

REACTIONS (11)
  - HYPERHIDROSIS [None]
  - HERNIA [None]
  - HEADACHE [None]
  - PALLOR [None]
  - NAUSEA [None]
  - MYALGIA [None]
  - NASOPHARYNGITIS [None]
  - FATIGUE [None]
  - ARTHRALGIA [None]
  - DIZZINESS [None]
  - CHILLS [None]
